FAERS Safety Report 4266726-8 (Version None)
Quarter: 2004Q1

REPORT INFORMATION
  Report Type: 
  Country: None (occurrence: None)
  Receive Date: 20040108
  Receipt Date: 20030617
  Transmission Date: 20041129
  Serious: Yes (Hospitalization)
  Sender: FDA-Public Use
  Company Number: US-GLAXOSMITHKLINE-A0416594A

PATIENT
  Age: 43 Year
  Sex: Male

DRUGS (6)
  1. ESKALITH CR [Suspect]
     Indication: SCHIZOAFFECTIVE DISORDER
     Dosage: 300MG VARIABLE DOSE
     Route: 048
     Dates: start: 19960101
  2. ESKALITH CR [Suspect]
     Indication: BIPOLAR I DISORDER
     Dosage: 450MG SEE DOSAGE TEXT
     Route: 048
     Dates: start: 19960401
  3. ESKALITH [Suspect]
     Indication: SCHIZOPHRENIA
     Dosage: 450MG SEE DOSAGE TEXT
     Route: 048
     Dates: start: 19940901, end: 19960401
  4. NAVANE [Concomitant]
     Dates: start: 20021201
  5. COGENTIN [Concomitant]
     Dates: start: 20021201
  6. DILANTIN [Concomitant]
     Indication: CONVULSION

REACTIONS (10)
  - BIPOLAR I DISORDER [None]
  - DEPRESSION [None]
  - DRY MOUTH [None]
  - HALLUCINATION, AUDITORY [None]
  - LIBIDO DECREASED [None]
  - MANIA [None]
  - PERIODONTAL DISEASE [None]
  - SELF-INJURIOUS IDEATION [None]
  - THERAPEUTIC AGENT TOXICITY [None]
  - TREATMENT NONCOMPLIANCE [None]
